FAERS Safety Report 5713773-2 (Version None)
Quarter: 2008Q2

REPORT INFORMATION
  Report Type: 
  Country: None (occurrence: None)
  Receive Date: 20080421
  Receipt Date: 20080414
  Transmission Date: 20081010
  Serious: Yes (Other)
  Sender: FDA-Public Use
  Company Number: L08-USA-01472-01

PATIENT
  Age: 47 Year
  Sex: Female

DRUGS (2)
  1. INDOMETHACIN [Suspect]
     Indication: OSTEOARTHRITIS
     Dosage: 50 MG BID
  2. METOPROLOL TARTRATE [Concomitant]

REACTIONS (6)
  - AUTOIMMUNE HEPATITIS [None]
  - BLOOD ALBUMIN INCREASED [None]
  - HEPATITIS ACUTE [None]
  - INTERNATIONAL NORMALISED RATIO INCREASED [None]
  - PANCYTOPENIA [None]
  - PROTHROMBIN TIME PROLONGED [None]
